FAERS Safety Report 26011305 (Version 1)
Quarter: 2025Q4

REPORT INFORMATION
  Report Type: Spontaneous
  Country: US (occurrence: US)
  Receive Date: 20251107
  Receipt Date: 20251107
  Transmission Date: 20260118
  Serious: Yes (Hospitalization)
  Sender: SANOFI AVENTIS
  Company Number: US-SA-2025SA330673

PATIENT
  Age: 82 Year
  Sex: Male

DRUGS (2)
  1. DUPIXENT [Suspect]
     Active Substance: DUPILUMAB
     Indication: Chronic obstructive pulmonary disease
     Dosage: 300 MG, QOW
     Route: 058
     Dates: start: 20241216
  2. OHTUVAYRE [Concomitant]
     Active Substance: ENSIFENTRINE
     Dosage: UNK

REACTIONS (5)
  - Fall [Unknown]
  - Respiratory tract infection [Unknown]
  - Head injury [Unknown]
  - Neck pain [Unknown]
  - Back pain [Unknown]

NARRATIVE: CASE EVENT DATE: 20251001
